FAERS Safety Report 7204714-X (Version None)
Quarter: 2010Q4

REPORT INFORMATION
  Report Type: 
  Country: None (occurrence: None)
  Receive Date: 20101230
  Receipt Date: 20101222
  Transmission Date: 20110411
  Serious: Yes (Hospitalization)
  Sender: FDA-Public Use
  Company Number: DE-JNJFOC-20101207720

PATIENT

DRUGS (1)
  1. REMICADE [Suspect]
     Indication: INFLAMMATION
     Route: 042

REACTIONS (1)
  - OSTEOPENIA [None]
